FAERS Safety Report 24271305 (Version 14)
Quarter: 2025Q2

REPORT INFORMATION
  Report Type: Report from Study
  Country: MX (occurrence: MX)
  Receive Date: 20240901
  Receipt Date: 20250530
  Transmission Date: 20250716
  Serious: Yes (Hospitalization, Other)
  Sender: NOVARTIS
  Company Number: MX-002147023-NVSC2024MX078516

PATIENT
  Age: 57 Year
  Sex: Female
  Weight: 59.2 kg

DRUGS (17)
  1. KISQALI [Suspect]
     Active Substance: RIBOCICLIB SUCCINATE
     Indication: Breast cancer
     Dosage: THREE 200 MG TABLETS, QD IN MORNING (OF 200 MG)
     Route: 048
     Dates: start: 202401, end: 20240405
  2. KISQALI [Suspect]
     Active Substance: RIBOCICLIB SUCCINATE
     Indication: Metastases to bone
     Dosage: 2 (200 MG) TABLETS, QD
     Route: 048
     Dates: start: 20240201
  3. KISQALI [Suspect]
     Active Substance: RIBOCICLIB SUCCINATE
     Dosage: 2 (200 MG) TABLETS, QD
     Route: 048
     Dates: start: 202402
  4. KISQALI [Suspect]
     Active Substance: RIBOCICLIB SUCCINATE
     Dosage: THREE 200 MG TABLETS, QD (OF 200 MG)
     Route: 048
     Dates: start: 20240328, end: 20240405
  5. KISQALI [Suspect]
     Active Substance: RIBOCICLIB SUCCINATE
     Dosage: THREE 200 MG TABLETS, QD IN MORNING (200 MG)
     Route: 048
     Dates: start: 20240411
  6. KISQALI [Suspect]
     Active Substance: RIBOCICLIB SUCCINATE
     Dosage: 400 MG, QD (2 X 200MG)
     Route: 048
  7. KISQALI [Suspect]
     Active Substance: RIBOCICLIB SUCCINATE
     Dosage: 2 DOSAGE FORM, QD (200 MG)
     Route: 048
  8. KISQALI [Suspect]
     Active Substance: RIBOCICLIB SUCCINATE
     Dosage: 2 DOSAGE FORM, QD OF 200 MG,
     Route: 048
  9. KISQALI [Suspect]
     Active Substance: RIBOCICLIB SUCCINATE
     Dosage: 2 DOSAGE FORM, QD (200 MG), ONGOING
     Route: 048
     Dates: start: 20240411
  10. KISQALI [Suspect]
     Active Substance: RIBOCICLIB SUCCINATE
     Dosage: 2 DOSAGE FORM OF 200MG, QD
     Route: 048
  11. FEMARA [Suspect]
     Active Substance: LETROZOLE
     Indication: Breast cancer
     Dosage: 1 DOSAGE FORM, QD
     Route: 048
     Dates: start: 202401
  12. FEMARA [Suspect]
     Active Substance: LETROZOLE
     Indication: Metastases to bone
  13. DENOSUMAB [Concomitant]
     Active Substance: DENOSUMAB
     Indication: Bone cancer
     Dosage: 1 DOSAGE FORM, QMO (INJECTION)
     Route: 030
     Dates: start: 202401
  14. DENOSUMAB [Concomitant]
     Active Substance: DENOSUMAB
     Dosage: 1 DOSAGE FORM, QMO
     Route: 058
     Dates: start: 202401
  15. CALTRATE [Concomitant]
     Active Substance: CALCIUM CARBONATE
     Indication: Product used for unknown indication
     Route: 065
  16. Astrozol [Concomitant]
     Indication: Breast cancer
     Dosage: 1 MG, QD, (TABLET)
     Route: 048
     Dates: start: 202401
  17. CALCIUM [Concomitant]
     Active Substance: CALCIUM
     Indication: Bone disorder
     Dosage: 600 MG, QD (1 DF QD)
     Route: 048
     Dates: start: 20250215, end: 20250429

REACTIONS (34)
  - Oxygen saturation decreased [Recovered/Resolved]
  - Dyspnoea [Recovered/Resolved]
  - Pyrexia [Recovered/Resolved]
  - Body temperature increased [Recovered/Resolved]
  - Pharyngitis [Recovered/Resolved]
  - Decreased immune responsiveness [Recovered/Resolved]
  - Pneumonia [Recovered/Resolved]
  - Pulmonary oedema [Recovered/Resolved]
  - Pneumonia [Recovered/Resolved]
  - Pyrexia [Unknown]
  - Secretion discharge [Unknown]
  - Nasal congestion [Unknown]
  - Lacrimation increased [Unknown]
  - Productive cough [Unknown]
  - Gastritis [Recovering/Resolving]
  - Colitis [Recovering/Resolving]
  - Colitis [Recovered/Resolved]
  - Fatigue [Recovering/Resolving]
  - Gastrointestinal disorder [Recovering/Resolving]
  - Anaemia [Recovered/Resolved]
  - Daydreaming [Recovered/Resolved]
  - Weight increased [Recovered/Resolved]
  - Protein total decreased [Recovered/Resolved]
  - Blood potassium decreased [Recovered/Resolved]
  - Product lot number issue [Unknown]
  - Dizziness [Recovered/Resolved]
  - Weight decreased [Recovered/Resolved]
  - Cough [Recovered/Resolved]
  - Diarrhoea [Recovered/Resolved]
  - Inflammation [Recovering/Resolving]
  - Abdominal discomfort [Unknown]
  - General physical health deterioration [Unknown]
  - Blood cholesterol increased [Recovered/Resolved]
  - Blood triglycerides increased [Recovering/Resolving]

NARRATIVE: CASE EVENT DATE: 20240101
